FAERS Safety Report 7672445-8 (Version None)
Quarter: 2011Q3

REPORT INFORMATION
  Report Type: 
  Country: None (occurrence: None)
  Receive Date: 20110809
  Receipt Date: 20110729
  Transmission Date: 20111222
  Serious: Yes (Hospitalization, Other)
  Sender: FDA-Public Use
  Company Number: US-MERCK-1010USA01772

PATIENT
  Age: 60 Year
  Sex: Female
  Weight: 94 kg

DRUGS (6)
  1. FOSAMAX [Suspect]
     Route: 048
     Dates: start: 20010101, end: 20081101
  2. FUROSEMIDE [Concomitant]
     Indication: SWELLING
     Route: 065
  3. FOSAMAX PLUS D [Suspect]
     Route: 048
     Dates: start: 20070127
  4. ALENDRONATE SODIUM [Suspect]
     Indication: OSTEOPENIA
     Route: 048
     Dates: start: 20081003
  5. FOSAMAX [Suspect]
     Indication: OSTEOPENIA
     Route: 048
     Dates: start: 19960101, end: 20010101
  6. ESTRADIOL [Suspect]
     Indication: HORMONE THERAPY
     Route: 065
     Dates: start: 19940101

REACTIONS (46)
  - EROSIVE OESOPHAGITIS [None]
  - GRANULOMA [None]
  - THROMBOCYTOSIS [None]
  - INTERVERTEBRAL DISC DEGENERATION [None]
  - FALL [None]
  - SINUSITIS [None]
  - OSTEOPOROSIS [None]
  - HYPERCALCIURIA [None]
  - ANAEMIA [None]
  - DERMATITIS CONTACT [None]
  - VITAMIN D DEFICIENCY [None]
  - TOOTH DISORDER [None]
  - INTERVERTEBRAL DISC PROTRUSION [None]
  - CERVICOBRACHIAL SYNDROME [None]
  - FEMUR FRACTURE [None]
  - PYREXIA [None]
  - URINARY TRACT INFECTION [None]
  - NECROSIS [None]
  - BONE DISORDER [None]
  - ABSCESS [None]
  - ROTATOR CUFF SYNDROME [None]
  - CHONDROPATHY [None]
  - ABSCESS LIMB [None]
  - CONSTIPATION [None]
  - FATIGUE [None]
  - FUNGAL INFECTION [None]
  - LOW TURNOVER OSTEOPATHY [None]
  - BRONCHITIS [None]
  - OSTEOMYELITIS ACUTE [None]
  - FRACTURE NONUNION [None]
  - BLOOD GLUCOSE INCREASED [None]
  - HAEMORRHOIDS [None]
  - DEPRESSION [None]
  - HIATUS HERNIA [None]
  - PATELLOFEMORAL PAIN SYNDROME [None]
  - BLOOD ALBUMIN DECREASED [None]
  - BACK DISORDER [None]
  - OSTEOMYELITIS CHRONIC [None]
  - DEVICE FAILURE [None]
  - GASTROOESOPHAGEAL REFLUX DISEASE [None]
  - DUPUYTREN'S CONTRACTURE [None]
  - MUSCULOSKELETAL PAIN [None]
  - IMPAIRED HEALING [None]
  - HYPERLIPIDAEMIA [None]
  - HYPOACUSIS [None]
  - CELLULITIS [None]
